FAERS Safety Report 4611718-X (Version None)
Quarter: 2005Q2

REPORT INFORMATION
  Report Type: 
  Country: None (occurrence: None)
  Receive Date: 20050311
  Receipt Date: 20041102
  Transmission Date: 20051028
  Serious: No
  Sender: FDA-Public Use
  Company Number: 2004-BP-10000BP

PATIENT
  Age: 76 Year
  Sex: Male
  Weight: 95.26 kg

DRUGS (10)
  1. SPIRIVA [Suspect]
     Indication: CHRONIC OBSTRUCTIVE PULMONARY DISEASE
     Dosage: ONE/ TWO PUFFS/ DAY (18 MCG), IH
     Route: 055
     Dates: start: 20040501
  2. SPIRIVA [Suspect]
  3. ADVAIR DISKUS 100/50 [Concomitant]
  4. POTASSIUM ACETATE [Concomitant]
  5. LASIX (LASIX) [Concomitant]
  6. COREG [Concomitant]
  7. LEXAPRO [Concomitant]
  8. SYNTHROID [Concomitant]
  9. ALTACE [Concomitant]
  10. OXYGEN (OXYGEN) [Concomitant]

REACTIONS (2)
  - AGEUSIA [None]
  - DRUG INEFFECTIVE [None]
